FAERS Safety Report 14807090 (Version 1)
Quarter: 2018Q2

REPORT INFORMATION
  Report Type: Spontaneous
  Country: GB (occurrence: GB)
  Receive Date: 20180425
  Receipt Date: 20180425
  Transmission Date: 20180711
  Serious: Yes (Other)
  Sender: FDA-Public Use
  Company Number: GB-SA-2018SA110276

PATIENT
  Age: 68 Year
  Sex: Male

DRUGS (1)
  1. AFLIBERCEPT [Suspect]
     Active Substance: AFLIBERCEPT
     Indication: AGE-RELATED MACULAR DEGENERATION
     Route: 042
     Dates: start: 20180323, end: 20180323

REACTIONS (3)
  - Endophthalmitis [Not Recovered/Not Resolved]
  - Eye inflammation [Unknown]
  - Vision blurred [Unknown]
